FAERS Safety Report 6521452-7 (Version None)
Quarter: 2009Q4

REPORT INFORMATION
  Report Type: 
  Country: None (occurrence: None)
  Receive Date: 20091230
  Receipt Date: 20091221
  Transmission Date: 20100525
  Serious: Yes (Other)
  Sender: FDA-Public Use
  Company Number: AT-ROCHE-675981

PATIENT
  Age: 44 Year
  Sex: Female
  Weight: 50 kg

DRUGS (4)
  1. TAMIFLU [Suspect]
     Indication: DRUG USE FOR UNKNOWN INDICATION
     Route: 048
     Dates: start: 20091125
  2. AUGMENTIN [Suspect]
     Indication: DRUG USE FOR UNKNOWN INDICATION
     Route: 042
     Dates: start: 20091125, end: 20091126
  3. AVELOX [Suspect]
     Indication: DRUG USE FOR UNKNOWN INDICATION
     Route: 065
     Dates: start: 20091125
  4. CLARITHROMYCIN [Suspect]
     Indication: DRUG USE FOR UNKNOWN INDICATION
     Route: 065
     Dates: start: 20091125

REACTIONS (3)
  - LIP SWELLING [None]
  - PARAESTHESIA ORAL [None]
  - RASH [None]
